FAERS Safety Report 4737882-X (Version None)
Quarter: 2005Q3

REPORT INFORMATION
  Report Type: 
  Country: None (occurrence: None)
  Receive Date: 20050809
  Receipt Date: 20050725
  Transmission Date: 20060218
  Serious: Yes (Other)
  Sender: FDA-Public Use
  Company Number: US-JNJFOC-20050800219

PATIENT
  Age: 53 Year
  Sex: Female

DRUGS (5)
  1. INFLIXIMAB [Suspect]
     Indication: RHEUMATOID ARTHRITIS
     Dosage: 0, 2, 6 WKS AND Q8 WKS THEREAFTER
     Route: 042
  2. CYCLOPHOSPHAMIDE [Suspect]
     Indication: DRUG USE FOR UNKNOWN INDICATION
  3. PREDNISONE [Concomitant]
  4. CELECOXIB [Concomitant]
  5. GABAPENTIN [Concomitant]

REACTIONS (3)
  - LEUKOPENIA [None]
  - LYMPHOPENIA [None]
  - MOLLUSCUM CONTAGIOSUM [None]
